FAERS Safety Report 25887340 (Version 1)
Quarter: 2025Q4

REPORT INFORMATION
  Report Type: Spontaneous
  Country: JP (occurrence: JP)
  Receive Date: 20251006
  Receipt Date: 20251006
  Transmission Date: 20260117
  Serious: Yes (Hospitalization)
  Sender: ABBVIE
  Company Number: JP-ABBVIE-6486368

PATIENT
  Age: 20 Year
  Sex: Male
  Weight: 100 kg

DRUGS (2)
  1. SKYRIZI [Suspect]
     Active Substance: RISANKIZUMAB-RZAA
     Indication: Crohn^s disease
     Dosage: 360 MILLIGRAM/SOLUTION FOR INJECTION IN CARTRIDGE
     Route: 058
     Dates: start: 202509
  2. SKYRIZI [Suspect]
     Active Substance: RISANKIZUMAB-RZAA
     Dosage: 360 MILLIGRAM/SOLUTION FOR INJECTION IN CARTRIDGE
     Route: 058
     Dates: start: 20231129, end: 202509

REACTIONS (2)
  - C-reactive protein increased [Unknown]
  - Crohn^s disease [Recovered/Resolved]

NARRATIVE: CASE EVENT DATE: 20250101
